FAERS Safety Report 15561935 (Version 1)
Quarter: 2018Q4

REPORT INFORMATION
  Report Type: Spontaneous
  Country: US (occurrence: US)
  Receive Date: 20181029
  Receipt Date: 20181029
  Transmission Date: 20190205
  Serious: Yes (Hospitalization)
  Sender: FDA-Public Use
  Company Number: None

PATIENT
  Age: 74 Year
  Sex: Female

DRUGS (11)
  1. FUROSEMIDE. [Concomitant]
     Active Substance: FUROSEMIDE
  2. TYLENOL [Concomitant]
     Active Substance: ACETAMINOPHEN
  3. ELIQUIS [Concomitant]
     Active Substance: APIXABAN
  4. SIMVASTATIN. [Concomitant]
     Active Substance: SIMVASTATIN
  5. PREDNISONE. [Concomitant]
     Active Substance: PREDNISONE
  6. PROPAFENONE. [Concomitant]
     Active Substance: PROPAFENONE
  7. NIFEDIPINE. [Concomitant]
     Active Substance: NIFEDIPINE
  8. TACROLIMUS. [Suspect]
     Active Substance: TACROLIMUS
     Indication: RENAL TRANSPLANT
     Dosage: ?          OTHER FREQUENCY:2 CAP AM 1 CAP PM;?
     Route: 048
     Dates: start: 20150306
  9. SOTALOL. [Concomitant]
     Active Substance: SOTALOL
  10. MYCOPHENOLATE [Suspect]
     Active Substance: MYCOPHENOLIC ACID
     Indication: RENAL TRANSPLANT
     Route: 048
     Dates: start: 20150306
  11. ZEASORB [Concomitant]
     Active Substance: MICONAZOLE NITRATE

REACTIONS (1)
  - Heart disease congenital [None]

NARRATIVE: CASE EVENT DATE: 20181010
